FAERS Safety Report 9911768 (Version 1)
Quarter: 2014Q1

REPORT INFORMATION
  Report Type: Report from Study
  Country: GB (occurrence: GB)
  Receive Date: 20140219
  Receipt Date: 20140219
  Transmission Date: 20141002
  Serious: Yes (Other)
  Sender: FDA-Public Use
  Company Number: PHHY2014GB019134

PATIENT
  Sex: Female

DRUGS (1)
  1. DICLOFENAC [Suspect]
     Indication: OSTEOARTHRITIS
     Dosage: 50 MG, EVERY 3 DAYS
     Route: 048
     Dates: start: 20120308, end: 20131106

REACTIONS (3)
  - Angina pectoris [Unknown]
  - Chest discomfort [Recovered/Resolved]
  - Hypertension [Unknown]
